FAERS Safety Report 9107530 (Version 1)
Quarter: 2013Q1

REPORT INFORMATION
  Report Type: Report from Study
  Country: DK (occurrence: DK)
  Receive Date: 20130221
  Receipt Date: 20130221
  Transmission Date: 20140127
  Serious: Yes (Hospitalization)
  Sender: FDA-Public Use
  Company Number: DK-ROCHE-755990

PATIENT
  Age: 61 None
  Sex: Male
  Weight: 81 kg

DRUGS (7)
  1. RITUXIMAB [Suspect]
     Indication: DIFFUSE LARGE B-CELL LYMPHOMA
     Dosage: LAST DOSE PRIOR TO SAE : 17 DECEMBER 2010
     Route: 042
     Dates: start: 20101217
  2. DOXORUBICIN [Suspect]
     Indication: DIFFUSE LARGE B-CELL LYMPHOMA
     Dosage: LAST DOSE PRIOR TO SAE : 17 DECEMBER 2010
     Route: 042
     Dates: start: 20101217
  3. PREDNISONE [Suspect]
     Indication: DIFFUSE LARGE B-CELL LYMPHOMA
     Dosage: AST DOSE PRIOR TO SAE : 21 DECEMBER 2010.
     Route: 048
     Dates: start: 20101217
  4. CYCLOPHOSPHAMIDE [Suspect]
     Indication: DIFFUSE LARGE B-CELL LYMPHOMA
     Dosage: AST DOSE PRIOR TO SAE : 17 DECEMBER 2010.
     Route: 042
     Dates: start: 20101217
  5. VINCRISTINE [Suspect]
     Indication: DIFFUSE LARGE B-CELL LYMPHOMA
     Dosage: AST DOSE PRIOR TO SAE : 17 DECEMBER 2010.
     Route: 042
     Dates: start: 20101217
  6. PEGFILGRASTIM [Suspect]
     Indication: DIFFUSE LARGE B-CELL LYMPHOMA
     Dosage: LAST DOSE PRIOR TO SAE : 20 DECEMBER 2010
     Route: 058
     Dates: start: 20101220
  7. PANTOLOC [Concomitant]
     Indication: PROPHYLAXIS
     Dosage: LAST DOSE : 02 JANUARY 2011.
     Route: 048

REACTIONS (1)
  - Malabsorption [Recovered/Resolved with Sequelae]
